FAERS Safety Report 14723853 (Version 1)
Quarter: 2018Q2

REPORT INFORMATION
  Report Type: Spontaneous
  Country: US (occurrence: US)
  Receive Date: 20180405
  Receipt Date: 20180405
  Transmission Date: 20180711
  Serious: Yes (Other)
  Sender: FDA-Public Use
  Company Number: US-TEVA-2018-US-877855

PATIENT
  Age: 78 Year
  Sex: Female
  Weight: 77.1 kg

DRUGS (1)
  1. MUCUS ER [Suspect]
     Active Substance: GUAIFENESIN
     Indication: NASAL CONGESTION
     Route: 048
     Dates: start: 20180324, end: 20180324

REACTIONS (3)
  - Cough [Unknown]
  - Choking [Unknown]
  - Wrong technique in product usage process [Unknown]

NARRATIVE: CASE EVENT DATE: 20180324
